FAERS Safety Report 7327491-0 (Version None)
Quarter: 2011Q1

REPORT INFORMATION
  Report Type: 
  Country: None (occurrence: None)
  Receive Date: 20110303
  Receipt Date: 20110218
  Transmission Date: 20110831
  Serious: No
  Sender: FDA-Public Use
  Company Number: US-BIOGENIDEC-2010BI038996

PATIENT
  Sex: Female

DRUGS (3)
  1. TYSABRI [Suspect]
     Indication: MULTIPLE SCLEROSIS
     Route: 042
     Dates: start: 20100701
  2. AVONEX [Concomitant]
     Indication: MULTIPLE SCLEROSIS
     Route: 030
     Dates: start: 20020101
  3. AVONEX [Concomitant]
     Route: 030
     Dates: start: 19980801

REACTIONS (8)
  - ABDOMINAL PAIN [None]
  - WHITE BLOOD CELL COUNT INCREASED [None]
  - DIARRHOEA [None]
  - NAUSEA [None]
  - CD8 LYMPHOCYTES INCREASED [None]
  - LYMPHOCYTE COUNT INCREASED [None]
  - CD4 LYMPHOCYTES INCREASED [None]
  - HEADACHE [None]
